FAERS Safety Report 4579635-1 (Version None)
Quarter: 2005Q1

REPORT INFORMATION
  Report Type: 
  Country: None (occurrence: None)
  Receive Date: 20050210
  Receipt Date: 20050204
  Transmission Date: 20050727
  Serious: Yes (Disabling, Other)
  Sender: FDA-Public Use
  Company Number: GBWYE287817DEC04

PATIENT
  Age: 65 Year
  Sex: Female

DRUGS (1)
  1. EFFEXOR [Suspect]
     Dosage: 37.5 MG
     Dates: start: 20041205, end: 20041205

REACTIONS (7)
  - ASTHENIA [None]
  - DIZZINESS [None]
  - DYSPHAGIA [None]
  - ORAL DISCOMFORT [None]
  - OROPHARYNGEAL SWELLING [None]
  - PALPITATIONS [None]
  - PARAESTHESIA [None]
